FAERS Safety Report 7591479-5 (Version None)
Quarter: 2011Q3

REPORT INFORMATION
  Report Type: 
  Country: None (occurrence: None)
  Receive Date: 20110701
  Receipt Date: 20110701
  Transmission Date: 20111222
  Serious: Yes (Other)
  Sender: FDA-Public Use
  Company Number: None

PATIENT
  Age: 37 Year
  Sex: Male
  Weight: 73.4827 kg

DRUGS (8)
  1. FRAGMIN [Concomitant]
  2. LEUKINE [Suspect]
     Dosage: 463 MCG DAYS 3-13 SQ
     Route: 058
     Dates: start: 20110617, end: 20110618
  3. KYTRIL [Concomitant]
  4. BENADRYL [Concomitant]
  5. TYLENOL-500 [Concomitant]
  6. PEPCID [Concomitant]
  7. BACTIM DS [Concomitant]
  8. PREDNISONE [Concomitant]

REACTIONS (3)
  - MOVEMENT DISORDER [None]
  - ABASIA [None]
  - ASTHENIA [None]
